FAERS Safety Report 9344603 (Version 4)
Quarter: 2013Q3

REPORT INFORMATION
  Report Type: Spontaneous
  Country: GB (occurrence: GB)
  Receive Date: 20130612
  Receipt Date: 20130919
  Transmission Date: 20140515
  Serious: Yes (Hospitalization, Other)
  Sender: FDA-Public Use
  Company Number: GB-VERTEX PHARMACEUTICALS INC-2013-006991

PATIENT
  Age: 53 Year
  Sex: Female

DRUGS (13)
  1. INCIVO [Suspect]
     Indication: HEPATITIS C
     Dosage: 750 MG, TID
     Route: 048
     Dates: start: 20130228, end: 20130511
  2. COPEGUS [Suspect]
     Indication: HEPATITIS C
     Dosage: 1000 MG, QD
     Route: 065
     Dates: start: 20130228
  3. COPEGUS [Suspect]
     Dosage: 800 MG, QD
     Route: 065
  4. COPEGUS [Suspect]
     Dosage: UNK
     Route: 065
  5. COPEGUS [Suspect]
     Dosage: 400 MG, BID
     Route: 065
  6. PEGASYS [Suspect]
     Indication: HEPATITIS C
     Dosage: 180 ?G, QW
     Route: 065
     Dates: start: 20130228
  7. PEGASYS [Suspect]
     Dosage: UNK
     Route: 065
  8. OLANZAPINE [Concomitant]
     Indication: BIPOLAR DISORDER
     Dosage: 17.5 MG, UNK
  9. CITALOPRAM [Concomitant]
     Dosage: 30 MG, UNK
  10. SIMVASTATIN [Concomitant]
  11. DEPAKOTE [Concomitant]
     Dosage: 750MG IN THE AM, 1000MG IN THE PM
  12. SERTRALINE [Concomitant]
     Indication: BIPOLAR DISORDER
     Dosage: 100 MG, UNK
     Route: 065
  13. LORAZEPAM [Concomitant]
     Indication: AFFECTIVE DISORDER
     Dosage: 100 MG, UNK
     Route: 065

REACTIONS (15)
  - Aggression [Unknown]
  - Activities of daily living impaired [Unknown]
  - Mood altered [Unknown]
  - Decreased appetite [Unknown]
  - Weight decreased [Unknown]
  - Agitation [Unknown]
  - Thinking abnormal [Unknown]
  - Communication disorder [Unknown]
  - Emotional distress [Unknown]
  - Mental impairment [Recovered/Resolved]
  - Haemoglobin decreased [Recovered/Resolved]
  - Nausea [Unknown]
  - Vomiting [Unknown]
  - Neglect of personal appearance [Unknown]
  - Fatigue [Unknown]
